FAERS Safety Report 8456018-5 (Version None)
Quarter: 2012Q2

REPORT INFORMATION
  Report Type: 
  Country: None (occurrence: None)
  Receive Date: 20120621
  Receipt Date: 20120614
  Transmission Date: 20120825
  Serious: Yes (Other)
  Sender: FDA-Public Use
  Company Number: PHHY2012BR051755

PATIENT
  Sex: Female

DRUGS (4)
  1. FORMOTEROL FUMARATE [Suspect]
     Dosage: 1 DF, BID
  2. ANAFRANIL [Suspect]
     Dosage: 1 DF, QD
  3. NAPHAZOLINE HYDROCHLORIDE [Suspect]
     Dosage: 1 DF, QD
  4. SLOW-K [Suspect]
     Dosage: 1 DF, QID

REACTIONS (1)
  - DRUG DEPENDENCE [None]
